FAERS Safety Report 11248679 (Version 2)
Quarter: 2015Q3

REPORT INFORMATION
  Report Type: Spontaneous
  Country: FR (occurrence: FR)
  Receive Date: 20150708
  Receipt Date: 20150714
  Transmission Date: 20151125
  Serious: Yes (Life-Threatening, Hospitalization)
  Sender: FDA-Public Use
  Company Number: FR-TEVA-299988ISR

PATIENT
  Age: 22 Year
  Sex: Female
  Weight: 65 kg

DRUGS (3)
  1. KETOCONAZOLE. [Concomitant]
     Active Substance: KETOCONAZOLE
     Indication: VAGINAL INFECTION
     Route: 067
     Dates: start: 200908
  2. TRAMADOL. [Suspect]
     Active Substance: TRAMADOL
     Indication: DYSMENORRHOEA
     Dosage: UP TO 10/DAY
     Route: 048
  3. TRAMADOL. [Suspect]
     Active Substance: TRAMADOL
     Route: 048
     Dates: start: 200908

REACTIONS (13)
  - Coagulopathy [Recovered/Resolved]
  - Renal failure [Recovered/Resolved]
  - Hepatic failure [Recovered/Resolved]
  - Mydriasis [Recovered/Resolved]
  - Cardiotoxicity [Recovered/Resolved]
  - Hypothermia [Recovered/Resolved]
  - Cardiac arrest [Recovered/Resolved]
  - Circulatory collapse [Recovered/Resolved]
  - Cardiac failure [Recovered/Resolved]
  - Intentional overdose [Recovered/Resolved]
  - Drug abuse [Recovered/Resolved]
  - Loss of consciousness [Recovered/Resolved]
  - Multi-organ failure [Recovered/Resolved]

NARRATIVE: CASE EVENT DATE: 200908
